FAERS Safety Report 23657441 (Version 1)
Quarter: 2024Q1

REPORT INFORMATION
  Report Type: Spontaneous
  Country: GB (occurrence: GB)
  Receive Date: 20240321
  Receipt Date: 20240321
  Transmission Date: 20240410
  Serious: Yes (Hospitalization, Other)
  Sender: FDA-Public Use
  Company Number: None

PATIENT
  Age: 76 Year
  Sex: Male

DRUGS (22)
  1. OLANZAPINE [Suspect]
     Active Substance: OLANZAPINE
     Dosage: AT NIGHT?DAILY DOSE: 2.5 MILLIGRAM
  2. ARIPIPRAZOLE [Suspect]
     Active Substance: ARIPIPRAZOLE
     Dosage: TWO TAKEN AS PER PSYCHIATRY LETTER. ?DOSE REDUCED FROM 10MG OD TO 5MG OD?DAILY DOSE: 5 MILLIGRAM
     Dates: end: 20240228
  3. ARIPIPRAZOLE [Suspect]
     Active Substance: ARIPIPRAZOLE
     Dosage: TWO TAKEN AS PER PSYCHIATRY LETTER. ?DOSE REDUCED FROM 10MG OD TO 5MG OD?DAILY DOSE: 10 MILLIGRAM
  4. Angitil SR [Concomitant]
     Dosage: BID, ONE TO BE TAKEN TWICE A DAY , ?DAILY DOSE: 180 MILLIGRAM
  5. KEMADRIN [Concomitant]
     Active Substance: PROCYCLIDINE HYDROCHLORIDE
     Dosage: ONE TO BE TAKEN THREE TIMES A DAY - B1, 3, 4 ?DAILY DOSE: 15 MILLIGRAM
  6. LATANOPROST [Concomitant]
     Active Substance: LATANOPROST
     Dosage: 50 MICROGRAMS / ML EYE DROPS 0.2 ML UNIT DOSE ONE DROP TO BE USED AT NIGHT IN THE AFFECTED EYE (S...
  7. COAL TAR\COCONUT OIL\SALICYLIC ACID [Concomitant]
     Active Substance: COAL TAR\COCONUT OIL\SALICYLIC ACID
     Dosage: APPLY TWICE WEEKLY
  8. ISOSORBIDE MONONITRATE [Concomitant]
     Active Substance: ISOSORBIDE MONONITRATE
     Dosage: EACH MORNING?DAILY DOSE: 60 MILLIGRAM
  9. OMEPRAZOLE [Concomitant]
     Active Substance: OMEPRAZOLE
     Dosage: DAILY DOSE: 20 MILLIGRAM
  10. LORAZEPAM [Concomitant]
     Active Substance: LORAZEPAM
     Dosage: ONE TABLET UP TO A MAXIMUM OF FIVE TIMES A DAY.
  11. MEMANTINE [Concomitant]
     Active Substance: MEMANTINE
     Dosage: DAILY DOSE: 20 MILLIGRAM
  12. METFORMIN [Concomitant]
     Active Substance: METFORMIN HYDROCHLORIDE
     Dosage: TWO TABLETS IN MORNING 1 EVENING , NEED TO BE TAKEN WITH?FOOD.?DAILY DOSE: 4 DOSAGE FORM
  13. FLUPENTIXOL [Concomitant]
     Active Substance: FLUPENTIXOL
     Dosage: STRENGTH: 200 MG / 1 ML  LAST HAD 24/01, NEXT DUE 21/02
  14. BISOPROLOL [Concomitant]
     Active Substance: BISOPROLOL\BISOPROLOL FUMARATE
     Dosage: STOPPED SINUS BRADY ON ELECTROCARDIOGRAM (ECG)?DAILY DOSE: 1.25 MILLIGRAM
  15. SERTRALINE [Concomitant]
     Active Substance: SERTRALINE HYDROCHLORIDE
     Dosage: DAILY DOSE: 100 MILLIGRAM
  16. NICORANDIL [Concomitant]
     Active Substance: NICORANDIL
     Dosage: ONE TO BE TAKEN TWICE A DAY ?DAILY DOSE: 40 MILLIGRAM
  17. RAMIPRIL [Concomitant]
     Active Substance: RAMIPRIL
     Dosage: DAILY DOSE: 2.5 MILLIGRAM
  18. APIXABAN [Concomitant]
     Active Substance: APIXABAN
     Dosage: ONE TO BE TAKEN TWICE A DAY ?DAILY DOSE: 5 MILLIGRAM
  19. FERROUS FUMARATE [Concomitant]
     Active Substance: FERROUS FUMARATE
     Dosage: ONE TO BE TAKEN TWICE A DAY ?DAILY DOSE: 420 MILLIGRAM
  20. ATORVASTATIN [Concomitant]
     Active Substance: ATORVASTATIN
     Dosage: AT NIGHT?DAILY DOSE: 20 MILLIGRAM
  21. NITROGLYCERIN [Concomitant]
     Active Substance: NITROGLYCERIN
     Dosage: AS DIRECTED, SUBLINGUAL SPRAY
     Route: 060
  22. FOLIC ACID [Concomitant]
     Active Substance: FOLIC ACID
     Dosage: ONE TO BE TAKEN EACH DAY - B1

REACTIONS (1)
  - Drug-induced liver injury [Unknown]

NARRATIVE: CASE EVENT DATE: 20240222
